FAERS Safety Report 10075759 (Version 1)
Quarter: 2014Q2

REPORT INFORMATION
  Report Type: Spontaneous
  Country: US (occurrence: US)
  Receive Date: 20140414
  Receipt Date: 20140414
  Transmission Date: 20141212
  Serious: Yes (Hospitalization)
  Sender: FDA-Public Use
  Company Number: US-BAYER-2014-052941

PATIENT
  Age: 42 Year
  Sex: Female
  Weight: 67.12 kg

DRUGS (5)
  1. YASMIN [Suspect]
  2. GIANVI [Suspect]
     Dosage: UNK
     Dates: start: 20120120, end: 20120331
  3. COENZYME Q10 [Concomitant]
     Dosage: 10 MG, DAILY
     Route: 048
  4. CYANOCOBALAMIN [Concomitant]
     Dosage: 1000 ?G, DAILY
     Route: 048
  5. OMEGA-3 FATTY ACIDS W/TOCOPHEROL [Concomitant]
     Dosage: 1000 ?G, UNK
     Route: 048

REACTIONS (3)
  - Pulmonary embolism [None]
  - Chest pain [None]
  - Dyspnoea [None]
